FAERS Safety Report 6249338-6 (Version None)
Quarter: 2009Q2

REPORT INFORMATION
  Report Type: 
  Country: None (occurrence: None)
  Receive Date: 20090629
  Receipt Date: 20090618
  Transmission Date: 20091009
  Serious: Yes (Hospitalization)
  Sender: FDA-Public Use
  Company Number: ZA-MERCK-0906ZAF00061

PATIENT
  Age: 52 Year
  Weight: 80 kg

DRUGS (4)
  1. PRIMAXIN [Suspect]
     Indication: MEDIASTINAL DISORDER
     Route: 042
     Dates: start: 20090513, end: 20090528
  2. CLINDAMYCIN [Concomitant]
     Indication: MEDIASTINAL DISORDER
     Route: 042
     Dates: start: 20090515, end: 20090528
  3. TEICOPLANIN [Concomitant]
     Route: 048
     Dates: start: 20090515, end: 20090528
  4. FLUCONAZOLE [Concomitant]
     Indication: MEDIASTINAL DISORDER
     Route: 042
     Dates: start: 20090518, end: 20090528

REACTIONS (2)
  - POSTICTAL STATE [None]
  - STATUS EPILEPTICUS [None]
